FAERS Safety Report 23426232 (Version 1)
Quarter: 2024Q1

REPORT INFORMATION
  Report Type: Spontaneous
  Country: AU (occurrence: AU)
  Receive Date: 20240122
  Receipt Date: 20240122
  Transmission Date: 20240409
  Serious: Yes (Hospitalization)
  Sender: FDA-Public Use
  Company Number: AU-TAKEDA-2023TUS106444

PATIENT
  Age: 59 Year
  Sex: Male

DRUGS (2)
  1. KIOVIG [Suspect]
     Active Substance: HUMAN IMMUNOGLOBULIN G
     Indication: Chronic inflammatory demyelinating polyradiculoneuropathy
     Dosage: 40 GRAM, MONTHLY
     Route: 042
  2. KIOVIG [Suspect]
     Active Substance: HUMAN IMMUNOGLOBULIN G
     Indication: Autoimmune neuropathy
     Dosage: 40 GRAM, MONTHLY
     Route: 042
     Dates: end: 20231023

REACTIONS (7)
  - Hospitalisation [Unknown]
  - COVID-19 [Unknown]
  - Pallor [Recovered/Resolved]
  - Hot flush [Recovered/Resolved]
  - Feeling hot [Recovered/Resolved]
  - Rash [Recovered/Resolved]
  - Hyperhidrosis [Recovered/Resolved]

NARRATIVE: CASE EVENT DATE: 20230814
